FAERS Safety Report 18590757 (Version 1)
Quarter: 2020Q4

REPORT INFORMATION
  Report Type: Spontaneous
  Country: AU (occurrence: AU)
  Receive Date: 20201208
  Receipt Date: 20201208
  Transmission Date: 20210114
  Serious: Yes (Other)
  Sender: FDA-Public Use
  Company Number: AU-MYLANLABS-2020M1099156

PATIENT
  Sex: Male

DRUGS (1)
  1. LOVAN [Suspect]
     Active Substance: FLUOXETINE HYDROCHLORIDE
     Indication: PRODUCT USED FOR UNKNOWN INDICATION
     Dosage: 20 MILLIGRAM

REACTIONS (4)
  - Dysphonia [Not Recovered/Not Resolved]
  - Foreign body in throat [Recovered/Resolved]
  - Cough [Unknown]
  - Pain [Recovered/Resolved]
